FAERS Safety Report 21098862 (Version 1)
Quarter: 2022Q3

REPORT INFORMATION
  Report Type: Spontaneous
  Country: US (occurrence: None)
  Receive Date: 20220719
  Receipt Date: 20220719
  Transmission Date: 20221027
  Serious: No
  Sender: FDA-Public Use
  Company Number: None

PATIENT
  Age: 68 Year
  Sex: Female
  Weight: 60.8 kg

DRUGS (1)
  1. TEMOZOLOMIDE [Suspect]
     Active Substance: TEMOZOLOMIDE
     Dates: end: 20220606

REACTIONS (4)
  - Platelet count decreased [None]
  - Platelet transfusion [None]
  - Contusion [None]
  - Therapy interrupted [None]

NARRATIVE: CASE EVENT DATE: 20220706
